FAERS Safety Report 6275048-5 (Version None)
Quarter: 2009Q3

REPORT INFORMATION
  Report Type: 
  Country: None (occurrence: None)
  Receive Date: 20090721
  Receipt Date: 20090710
  Transmission Date: 20100115
  Serious: Yes (Hospitalization)
  Sender: FDA-Public Use
  Company Number: US-SOLVAY-00209003727

PATIENT
  Age: 19588 Day
  Sex: Male
  Weight: 106.81 kg

DRUGS (1)
  1. ANDROGEL [Suspect]
     Indication: BLOOD TESTOSTERONE DECREASED
     Dosage: DAILY DOSE: 5 GRAM(S)
     Route: 062
     Dates: start: 20090501, end: 20090706

REACTIONS (2)
  - ABDOMINAL PAIN LOWER [None]
  - HEADACHE [None]
